FAERS Safety Report 7864619-8 (Version None)
Quarter: 2011Q4

REPORT INFORMATION
  Report Type: 
  Country: None (occurrence: None)
  Receive Date: 20111026
  Receipt Date: 20111014
  Transmission Date: 20120403
  Serious: Yes (Other)
  Sender: FDA-Public Use
  Company Number: 2011MA015266

PATIENT
  Age: 49 Year
  Sex: Female

DRUGS (11)
  1. PREGABALIN [Concomitant]
  2. AMLODIPINE [Concomitant]
  3. DULOXETIME HYDROCHLORIDE [Concomitant]
  4. FLUOXETINE [Suspect]
     Indication: MAJOR DEPRESSION
     Dosage: 40 MG;QD;PO
     Route: 048
     Dates: start: 20110805
  5. FUROSEMIDE [Concomitant]
  6. ACETAMINOPHEN [Concomitant]
  7. IBUPROFEN [Concomitant]
  8. LORATADINE [Concomitant]
  9. LANSOPRAZOLE [Concomitant]
  10. PERINDOPRIL ERBUMINE [Concomitant]
  11. OXYCODONE HCL [Concomitant]

REACTIONS (3)
  - SUICIDAL IDEATION [None]
  - PAIN IN EXTREMITY [None]
  - AKATHISIA [None]
